FAERS Safety Report 4426493-1 (Version None)
Quarter: 2004Q3

REPORT INFORMATION
  Report Type: 
  Country: None (occurrence: None)
  Receive Date: 20040816
  Receipt Date: 20040803
  Transmission Date: 20050211
  Serious: Yes (Other)
  Sender: FDA-Public Use
  Company Number: US-JNJFOC-20040603607

PATIENT
  Sex: Female
  Weight: 62.6 kg

DRUGS (20)
  1. REMICADE [Suspect]
     Route: 042
  2. REMICADE [Suspect]
     Indication: RHEUMATOID ARTHRITIS
     Route: 042
  3. NEXIUM [Concomitant]
  4. CELEBREX [Concomitant]
  5. ZYRTEC [Concomitant]
  6. FOLIC ACID [Concomitant]
  7. ACTZ [Concomitant]
  8. METHOTREXATE [Concomitant]
  9. BIRTH CONTROL PILLS [Concomitant]
  10. MULTI-VITAMIN [Concomitant]
  11. MULTI-VITAMIN [Concomitant]
  12. MULTI-VITAMIN [Concomitant]
  13. MULTI-VITAMIN [Concomitant]
  14. MULTI-VITAMIN [Concomitant]
  15. MULTI-VITAMIN [Concomitant]
  16. MULTI-VITAMIN [Concomitant]
  17. MULTI-VITAMIN [Concomitant]
  18. POTASSIUM [Concomitant]
  19. DIETHYLPROPION HCL [Concomitant]
     Indication: WEIGHT CONTROL
  20. XENICAL [Concomitant]
     Indication: WEIGHT CONTROL

REACTIONS (3)
  - BLOOD POTASSIUM DECREASED [None]
  - CARTILAGE INJURY [None]
  - WEIGHT INCREASED [None]
